FAERS Safety Report 20037604 (Version 3)
Quarter: 2022Q3

REPORT INFORMATION
  Report Type: Spontaneous
  Country: CA (occurrence: None)
  Receive Date: 20211105
  Receipt Date: 20220920
  Transmission Date: 20221027
  Serious: Yes (Other)
  Sender: FDA-Public Use
  Company Number: CA-Orion Corporation ORION PHARMA-TREX2019-4043

PATIENT
  Age: 64 Year
  Sex: Male

DRUGS (5)
  1. METHOTREXATE [Suspect]
     Active Substance: METHOTREXATE
     Indication: Product used for unknown indication
     Dosage: 20-25 MG
     Route: 065
     Dates: start: 20160119, end: 202209
  2. METHOTREXATE [Suspect]
     Active Substance: METHOTREXATE
     Route: 065
     Dates: start: 202209
  3. XELJANZ [Suspect]
     Active Substance: TOFACITINIB CITRATE
     Indication: Rheumatoid arthritis
     Route: 048
     Dates: start: 20190906, end: 202209
  4. HYDROXYCHLOROQUINE [Concomitant]
     Active Substance: HYDROXYCHLOROQUINE
     Route: 065
     Dates: start: 20160119
  5. ARAVA [Concomitant]
     Active Substance: LEFLUNOMIDE
     Route: 048

REACTIONS (18)
  - Therapeutic product effect incomplete [Unknown]
  - Pleural effusion [Recovering/Resolving]
  - Dyspnoea [Recovering/Resolving]
  - Pyrexia [Recovering/Resolving]
  - Haemoglobin decreased [Recovering/Resolving]
  - Blood albumin decreased [Recovering/Resolving]
  - Pelvic pain [Not Recovered/Not Resolved]
  - Musculoskeletal chest pain [Not Recovered/Not Resolved]
  - Bronchitis [Unknown]
  - Bacterial infection [Unknown]
  - Rheumatoid arthritis [Not Recovered/Not Resolved]
  - Malaise [Unknown]
  - Pain in extremity [Unknown]
  - Arthralgia [Unknown]
  - Musculoskeletal stiffness [Unknown]
  - Middle insomnia [Unknown]
  - Joint swelling [Unknown]
  - Inflammation [Unknown]

NARRATIVE: CASE EVENT DATE: 20190101
